FAERS Safety Report 18513313 (Version 1)
Quarter: 2020Q4

REPORT INFORMATION
  Report Type: Spontaneous
  Country: BR (occurrence: BR)
  Receive Date: 20201118
  Receipt Date: 20201118
  Transmission Date: 20210114
  Serious: Yes (Hospitalization)
  Sender: FDA-Public Use
  Company Number: BR-ROCHE-2705310

PATIENT
  Sex: Female
  Weight: 53 kg

DRUGS (4)
  1. ABRAXANE [Suspect]
     Active Substance: PACLITAXEL
     Indication: BREAST INJURY
     Dosage: INFUSION TIME OF 30 MINUTES.
     Route: 042
  2. TECENTRIQ [Suspect]
     Active Substance: ATEZOLIZUMAB
     Indication: BREAST INJURY
     Dosage: MOST RECENT DOSE WAS ON 21-JUL-2020 WITH AN INTERVAL BETWEEN INFUSIONS OF 28 DAYS
     Route: 042
     Dates: start: 20201008
  3. REUQUINOL [Concomitant]
     Active Substance: HYDROXYCHLOROQUINE SULFATE
  4. PREDNISONE. [Concomitant]
     Active Substance: PREDNISONE

REACTIONS (2)
  - Electrolyte imbalance [Recovered/Resolved]
  - Anaemia [Recovered/Resolved]
